FAERS Safety Report 6013049-2 (Version None)
Quarter: 2008Q4

REPORT INFORMATION
  Report Type: 
  Country: None (occurrence: None)
  Receive Date: 20081217
  Receipt Date: 20081201
  Transmission Date: 20090506
  Serious: Yes (Other)
  Sender: FDA-Public Use
  Company Number: 2007US003036

PATIENT
  Age: 71 Year
  Sex: Male
  Weight: 102 kg

DRUGS (14)
  1. FK506 - CREAM - PSORIASIS (TACROLIMUS) CREAM [Suspect]
     Indication: PSORIASIS
     Dosage: 0.1 %, BID, TOPICAL
     Route: 061
     Dates: start: 20060530, end: 20070529
  2. CENTRUM A TO ZINC (VITAMINS NOS, MINERALS NOS) [Concomitant]
  3. ASCORBIC ACID [Concomitant]
  4. ATENOLOL [Concomitant]
  5. NORVASC [Concomitant]
  6. LIPITOR [Concomitant]
  7. NAPROXEN SODIUM [Concomitant]
  8. HYDROCORTISONE [Concomitant]
  9. AVEENO ANTI-ITCH (CAMPHOR) [Concomitant]
  10. CADUET (AMLODIPINE BESILATE, ATORVASTATIN CALCIUM) [Concomitant]
  11. LIBRIUM [Concomitant]
  12. ACAMPROSATE CALCIUM (ACAMPROSATE CALCIUM) [Concomitant]
  13. PNEUMOVAX (ONEUMOCOCCAL VACCINE) [Concomitant]
  14. LISINOPRIL (LISINOPRIL DIHYDRATE) [Concomitant]

REACTIONS (7)
  - APPLICATION SITE IRRITATION [None]
  - DRY SKIN [None]
  - LENTIGO MALIGNA STAGE UNSPECIFIED [None]
  - NASOPHARYNGITIS [None]
  - PAIN IN EXTREMITY [None]
  - SCAR [None]
  - TYPE 2 DIABETES MELLITUS [None]
